FAERS Safety Report 23298957 (Version 1)
Quarter: 2023Q4

REPORT INFORMATION
  Report Type: Spontaneous
  Country: FR (occurrence: FR)
  Receive Date: 20231215
  Receipt Date: 20231215
  Transmission Date: 20240109
  Serious: Yes (Hospitalization)
  Sender: FDA-Public Use
  Company Number: None

PATIENT
  Age: 14 Year
  Sex: Female
  Weight: 37 kg

DRUGS (3)
  1. ATROPINE SULFATE [Suspect]
     Active Substance: ATROPINE SULFATE
     Indication: Salivary hypersecretion
     Dosage: NOT SPECIFIED
     Dates: start: 20230830, end: 20230914
  2. PHENOBARBITAL [Suspect]
     Active Substance: PHENOBARBITAL
     Indication: Epilepsy
     Dates: start: 20230830, end: 20230910
  3. TOBI [Suspect]
     Active Substance: TOBRAMYCIN
     Indication: Pseudomonas infection
     Dates: start: 20230820, end: 20230914

REACTIONS (2)
  - Pyrexia [Recovered/Resolved]
  - Rash maculo-papular [Recovered/Resolved]

NARRATIVE: CASE EVENT DATE: 20230910
